FAERS Safety Report 14673736 (Version 3)
Quarter: 2018Q2

REPORT INFORMATION
  Report Type: Spontaneous
  Country: US (occurrence: US)
  Receive Date: 20180323
  Receipt Date: 20180518
  Transmission Date: 20180711
  Serious: Yes (Life-Threatening, Hospitalization)
  Sender: FDA-Public Use
  Company Number: US-PFIZER INC-2018120428

PATIENT
  Age: 71 Year
  Sex: Male
  Weight: 65.77 kg

DRUGS (4)
  1. METHOCARBAMOL. [Concomitant]
     Active Substance: METHOCARBAMOL
     Dosage: 750 MG, AS NEEDED (EVERY 6 HRS)
  2. PENTAZOCINE NALOXONE HYDROCHLORIDE [Concomitant]
     Dosage: 1 DF, 3X/DAY (NALOXONE: 0.5 MG / PENTAZOCINE: 50 MG)
  3. LYRICA [Suspect]
     Active Substance: PREGABALIN
     Indication: NEURALGIA
     Dosage: 150 MG, 3X/DAY
     Route: 048
  4. LYRICA [Suspect]
     Active Substance: PREGABALIN
     Dosage: 150 MG, 3X/DAY

REACTIONS (4)
  - Oxygen saturation decreased [Recovering/Resolving]
  - Liver abscess [Unknown]
  - Pulmonary sepsis [Unknown]
  - Sepsis [Unknown]

NARRATIVE: CASE EVENT DATE: 20171031
